FAERS Safety Report 18884493 (Version 1)
Quarter: 2021Q1

REPORT INFORMATION
  Report Type: Spontaneous
  Country: US (occurrence: US)
  Receive Date: 20210211
  Receipt Date: 20210211
  Transmission Date: 20210420
  Serious: Yes (Hospitalization)
  Sender: FDA-Public Use
  Company Number: None

PATIENT
  Age: 67 Year
  Sex: Female

DRUGS (1)
  1. TALTZ [Suspect]
     Active Substance: IXEKIZUMAB
     Indication: PSORIASIS
     Dosage: 80MG Q4W SC
     Route: 058
     Dates: start: 20180802

REACTIONS (2)
  - Cardiac operation [None]
  - Aortic valve replacement [None]

NARRATIVE: CASE EVENT DATE: 202102
